FAERS Safety Report 7512353-6 (Version None)
Quarter: 2011Q2

REPORT INFORMATION
  Report Type: 
  Country: None (occurrence: None)
  Receive Date: 20110520
  Receipt Date: 20110509
  Transmission Date: 20111010
  Serious: Yes (Other)
  Sender: FDA-Public Use
  Company Number: 1000019670

PATIENT
  Age: 78 Year
  Sex: Male

DRUGS (8)
  1. AMOXICILLIN W/ CLAVULANATE POTASSIUM(AMOXICILLIN, CLAVULANATE POTASSIU [Concomitant]
  2. ASPIRIN [Concomitant]
  3. ROFLUMILAST (ROFLUMILAST) (500 MICROGRAM, TABLETS) [Suspect]
     Indication: CHRONIC OBSTRUCTIVE PULMONARY DISEASE
     Dosage: ORAL
     Route: 048
     Dates: start: 20110316, end: 20110322
  4. AMLODIPINE [Concomitant]
  5. DEFLAZACORT (DEFLAZACORT) (DEFLAZACORT) [Concomitant]
  6. IRBESARTAN (IRBESARTAN) (IRBESARTAN) [Concomitant]
  7. IVABRADINE (IVABRADINE)(IVABRADINE) [Concomitant]
  8. RAMIPRIL [Concomitant]

REACTIONS (4)
  - RESPIRATORY TRACT INFECTION [None]
  - CONDITION AGGRAVATED [None]
  - CHEST PAIN [None]
  - CARDIOMYOPATHY [None]
